FAERS Safety Report 14964524 (Version 1)
Quarter: 2018Q2

REPORT INFORMATION
  Report Type: Spontaneous
  Country: US (occurrence: US)
  Receive Date: 20180510
  Receipt Date: 20180510
  Transmission Date: 20180711
  Serious: Yes (Death)
  Sender: FDA-Public Use
  Company Number: None

PATIENT
  Age: 64 Year
  Sex: Female

DRUGS (2)
  1. CAPECITABINE 500 MG [Suspect]
     Active Substance: CAPECITABINE
     Route: 048
     Dates: start: 20180412, end: 20180507
  2. PROCRIT [Concomitant]
     Active Substance: ERYTHROPOIETIN

REACTIONS (1)
  - Death [None]

NARRATIVE: CASE EVENT DATE: 20180507
